FAERS Safety Report 22524295 (Version 1)
Quarter: 2023Q2

REPORT INFORMATION
  Report Type: Other
  Country: NL (occurrence: None)
  Receive Date: 20230606
  Receipt Date: 20230606
  Transmission Date: 20230722
  Serious: Yes (Other)
  Sender: FDA-Public Use
  Company Number: NL-ROCHE-3359793

PATIENT

DRUGS (3)
  1. INVESTIGATIONAL PRODUCT [Suspect]
     Active Substance: INVESTIGATIONAL PRODUCT
     Indication: Ischaemic stroke
     Route: 042
  2. ALTEPLASE [Suspect]
     Active Substance: ALTEPLASE
     Indication: Ischaemic stroke
     Dosage: INTERVENTION GROUP
     Route: 040
  3. ALTEPLASE [Suspect]
     Active Substance: ALTEPLASE
     Dosage: CONTROL GROUP
     Route: 042

REACTIONS (4)
  - Haemorrhage intracranial [Unknown]
  - Haemorrhage [Unknown]
  - Pneumonia [Unknown]
  - Infection [Unknown]
